FAERS Safety Report 16643545 (Version 1)
Quarter: 2019Q3

REPORT INFORMATION
  Report Type: Spontaneous
  Country: US (occurrence: US)
  Receive Date: 20190729
  Receipt Date: 20190729
  Transmission Date: 20191004
  Serious: No
  Sender: FDA-Public Use
  Company Number: US-PRINSTON PHARMACEUTICAL INC.-2019PRN00066

PATIENT
  Sex: Female

DRUGS (1)
  1. CLONAZEPAM. [Suspect]
     Active Substance: CLONAZEPAM
     Dosage: UNK UNK, 1X/DAY

REACTIONS (3)
  - Therapeutic product effect incomplete [Recovered/Resolved]
  - Ill-defined disorder [Recovered/Resolved]
  - Performance status decreased [Recovered/Resolved]
